FAERS Safety Report 9306385 (Version 2)
Quarter: 2013Q3

REPORT INFORMATION
  Report Type: Spontaneous
  Country: FR (occurrence: FR)
  Receive Date: 20130523
  Receipt Date: 20130702
  Transmission Date: 20140515
  Serious: Yes (Hospitalization)
  Sender: FDA-Public Use
  Company Number: PHHY2013FR051485

PATIENT
  Age: 70 Year
  Sex: Female

DRUGS (7)
  1. ACLASTA [Suspect]
     Indication: OSTEOPOROSIS POSTMENOPAUSAL
     Dosage: 5 MG, UNK
     Route: 042
     Dates: start: 20130513
  2. AXELER [Concomitant]
     Indication: HYPERTENSION
     Dosage: 40/5, QD
     Route: 048
  3. METFORMIN [Concomitant]
     Dosage: 1 G, TID
     Route: 048
  4. KARDEGIC [Concomitant]
     Dosage: 75 MG, QD
     Route: 048
  5. CRESTOR [Concomitant]
     Dosage: 5 MG, QD
     Route: 048
  6. STILNOX [Concomitant]
     Dosage: 10 MG, QD
  7. OXYCONTIN [Concomitant]
     Dosage: 5 MG, QD

REACTIONS (20)
  - Synovitis [Recovering/Resolving]
  - Gouty arthritis [Unknown]
  - Joint swelling [Unknown]
  - Arthralgia [Unknown]
  - Polyarthritis [Unknown]
  - Joint effusion [Unknown]
  - Pyrexia [Recovered/Resolved]
  - Crystalluria [Unknown]
  - Lymphopenia [Unknown]
  - Iron deficiency [Unknown]
  - Arthropathy [Unknown]
  - Chondrocalcinosis [Unknown]
  - Joint injury [Unknown]
  - Heart rate increased [Unknown]
  - Spinal disorder [Unknown]
  - Rheumatic disorder [Unknown]
  - Osteoarthritis [Unknown]
  - Oedema [Unknown]
  - Hypertension [Unknown]
  - Dehydration [Unknown]
